FAERS Safety Report 20133889 (Version 1)
Quarter: 2021Q4

REPORT INFORMATION
  Report Type: Spontaneous
  Country: JP (occurrence: JP)
  Receive Date: 20211201
  Receipt Date: 20211201
  Transmission Date: 20220303
  Serious: Yes (Life-Threatening, Hospitalization, Other)
  Sender: FDA-Public Use
  Company Number: JP-ASTELLAS-2021JP023088

PATIENT
  Age: 25 Year
  Sex: Female

DRUGS (2)
  1. PROGRAF [Suspect]
     Active Substance: TACROLIMUS
     Indication: Prophylaxis against transplant rejection
     Dosage: 1 MG/DAY, UNKNOWN FREQ.
     Route: 048
  2. PREDNISOLONE [Concomitant]
     Active Substance: PREDNISOLONE
     Indication: Product used for unknown indication
     Dosage: UNK UNK, UNKNOWN FREQ.
     Route: 048

REACTIONS (1)
  - COVID-19 pneumonia [Recovered/Resolved]
